FAERS Safety Report 21186206 (Version 1)
Quarter: 2022Q3

REPORT INFORMATION
  Report Type: Spontaneous
  Country: GB (occurrence: GB)
  Receive Date: 20220808
  Receipt Date: 20220808
  Transmission Date: 20221027
  Serious: Yes (Hospitalization)
  Sender: FDA-Public Use
  Company Number: None

PATIENT
  Age: 61 Year
  Sex: Male

DRUGS (6)
  1. METFORMIN [Suspect]
     Active Substance: METFORMIN HYDROCHLORIDE
  2. OMEPRAZOLE [Suspect]
     Active Substance: OMEPRAZOLE
     Indication: Product used for unknown indication
  3. DOMPERIDONE [Concomitant]
     Active Substance: DOMPERIDONE
  4. MORPHINE [Concomitant]
     Active Substance: MORPHINE
  5. ONDANSETRON [Concomitant]
     Active Substance: ONDANSETRON
  6. ZOPICLONE [Concomitant]
     Active Substance: ZOPICLONE

REACTIONS (2)
  - Blood lactic acid increased [Recovered/Resolved]
  - Hypomagnesaemia [Recovered/Resolved]
